FAERS Safety Report 9513639 (Version 2)
Quarter: 2013Q4

REPORT INFORMATION
  Report Type: Spontaneous
  Country: FR (occurrence: FR)
  Receive Date: 20130910
  Receipt Date: 20131001
  Transmission Date: 20140711
  Serious: Yes (Other)
  Sender: FDA-Public Use
  Company Number: FR-GLAXOSMITHKLINE-B0920949A

PATIENT
  Age: 27 Year
  Sex: Male
  Weight: 67 kg

DRUGS (1)
  1. IMIJECT [Suspect]
     Indication: CLUSTER HEADACHE
     Route: 058
     Dates: start: 2012

REACTIONS (2)
  - Osteonecrosis [Not Recovered/Not Resolved]
  - Drug abuse [Unknown]
